FAERS Safety Report 7718129-9 (Version None)
Quarter: 2011Q3

REPORT INFORMATION
  Report Type: 
  Country: None (occurrence: None)
  Receive Date: 20110830
  Receipt Date: 20110822
  Transmission Date: 20111222
  Serious: Yes (Other)
  Sender: FDA-Public Use
  Company Number: ES-JNJFOC-20110805863

PATIENT
  Age: 30 Year
  Sex: Female

DRUGS (2)
  1. METHOTREXATE [Concomitant]
  2. REMICADE [Suspect]
     Indication: TAKAYASU'S ARTERITIS
     Route: 042

REACTIONS (4)
  - MATERNAL EXPOSURE DURING PREGNANCY [None]
  - PULMONARY TUBERCULOSIS [None]
  - WEIGHT DECREASED [None]
  - MYCOBACTERIUM AVIUM COMPLEX INFECTION [None]
